FAERS Safety Report 9124628 (Version 8)
Quarter: 2014Q1

REPORT INFORMATION
  Report Type: Report from Study
  Country: US (occurrence: US)
  Receive Date: 20130227
  Receipt Date: 20140206
  Transmission Date: 20141002
  Serious: Yes (Death, Hospitalization)
  Sender: FDA-Public Use
  Company Number: US-ACTELION-A-NJ2013-79782

PATIENT
  Age: 69 Year
  Sex: Female

DRUGS (5)
  1. VELETRI [Suspect]
     Indication: PULMONARY ARTERIAL HYPERTENSION
     Dosage: 79 NG/KG, PER MIN
     Route: 042
     Dates: start: 20111003
  2. VELETRI [Suspect]
     Dosage: 84 NG/KG, PER MIN
     Route: 042
     Dates: start: 20110921
  3. TRACLEER [Suspect]
     Indication: PULMONARY ARTERIAL HYPERTENSION
     Dosage: 125 MG, BID
     Route: 048
  4. TRACLEER [Suspect]
     Dosage: 62.5 MG, BID
     Route: 048
  5. LASIX [Concomitant]

REACTIONS (23)
  - Death [Fatal]
  - Hepatomegaly [Recovering/Resolving]
  - Abdominal pain upper [Recovering/Resolving]
  - Atrial tachycardia [Recovering/Resolving]
  - Pulmonary oedema [Unknown]
  - Splenomegaly [Recovering/Resolving]
  - Platelet count decreased [Unknown]
  - Dyspnoea [Recovering/Resolving]
  - Heart rate increased [Recovering/Resolving]
  - Pleural effusion [Unknown]
  - Fluid retention [Unknown]
  - Chest pain [Recovered/Resolved]
  - Anaemia [Recovering/Resolving]
  - Right ventricular failure [Unknown]
  - Sinusitis [Recovered/Resolved]
  - Upper respiratory tract infection [Unknown]
  - Malaise [Unknown]
  - Abdominal discomfort [Unknown]
  - General physical health deterioration [Unknown]
  - Diarrhoea [Unknown]
  - Influenza [Unknown]
  - Nasopharyngitis [Unknown]
  - Epistaxis [Unknown]
